FAERS Safety Report 8274105-1 (Version None)
Quarter: 2012Q2

REPORT INFORMATION
  Report Type: 
  Country: None (occurrence: None)
  Receive Date: 20120411
  Receipt Date: 20120405
  Transmission Date: 20120825
  Serious: Yes (Other)
  Sender: FDA-Public Use
  Company Number: US-PFIZER INC-2012087224

PATIENT
  Sex: Female

DRUGS (1)
  1. NORGESTREL AND ETHINYL ESTRADIOL [Suspect]
     Indication: CONTRACEPTION
     Dosage: DAILY
     Route: 048
     Dates: end: 20111202

REACTIONS (11)
  - PRODUCT QUALITY ISSUE [None]
  - OEDEMA PERIPHERAL [None]
  - CONTUSION [None]
  - BONE PAIN [None]
  - LOCAL SWELLING [None]
  - ARTHRALGIA [None]
  - GOITRE [None]
  - WHITE BLOOD CELL COUNT DECREASED [None]
  - BONE SWELLING [None]
  - JOINT SWELLING [None]
  - PAIN IN EXTREMITY [None]
